FAERS Safety Report 18349664 (Version 3)
Quarter: 2023Q2

REPORT INFORMATION
  Report Type: Spontaneous
  Country: US (occurrence: None)
  Receive Date: 20201006
  Receipt Date: 20230526
  Transmission Date: 20230721
  Serious: Yes (Hospitalization, Other)
  Sender: FDA-Public Use
  Company Number: 2020SF27430

PATIENT
  Age: 618 Month
  Sex: Male
  Weight: 122.5 kg

DRUGS (50)
  1. FARXIGA [Suspect]
     Active Substance: DAPAGLIFLOZIN PROPANEDIOL
     Indication: Type 2 diabetes mellitus
     Route: 048
     Dates: start: 201708, end: 20181003
  2. FARXIGA [Suspect]
     Active Substance: DAPAGLIFLOZIN PROPANEDIOL
     Indication: Weight decreased
     Route: 048
     Dates: start: 201708, end: 20181003
  3. FARXIGA [Suspect]
     Active Substance: DAPAGLIFLOZIN PROPANEDIOL
     Indication: Blood pressure decreased
     Route: 048
     Dates: start: 201708, end: 20181003
  4. FARXIGA [Suspect]
     Active Substance: DAPAGLIFLOZIN PROPANEDIOL
     Indication: Type 2 diabetes mellitus
     Route: 048
     Dates: start: 201708, end: 201808
  5. FARXIGA [Suspect]
     Active Substance: DAPAGLIFLOZIN PROPANEDIOL
     Indication: Weight decreased
     Route: 048
     Dates: start: 201708, end: 201808
  6. FARXIGA [Suspect]
     Active Substance: DAPAGLIFLOZIN PROPANEDIOL
     Indication: Blood pressure decreased
     Route: 048
     Dates: start: 201708, end: 201808
  7. LINEZOLID [Concomitant]
     Active Substance: LINEZOLID
  8. ZOSYN [Concomitant]
     Active Substance: PIPERACILLIN SODIUM\TAZOBACTAM SODIUM
  9. VANCOMYCIN [Concomitant]
     Active Substance: VANCOMYCIN
  10. ACETAMINOPHEN\OXYCODONE HYDROCHLORIDE [Concomitant]
     Active Substance: ACETAMINOPHEN\OXYCODONE HYDROCHLORIDE
  11. METHOCARBAMOL [Concomitant]
     Active Substance: METHOCARBAMOL
  12. NAPROXEN [Concomitant]
     Active Substance: NAPROXEN
  13. FLUOXETINE [Concomitant]
     Active Substance: FLUOXETINE HYDROCHLORIDE
  14. FUROSEMIDE [Concomitant]
     Active Substance: FUROSEMIDE
  15. ACETAMINOPHEN\HYDROCODONE [Concomitant]
     Active Substance: ACETAMINOPHEN\HYDROCODONE
  16. OMEPRAZOLE [Concomitant]
     Active Substance: OMEPRAZOLE
  17. CHANTIX [Concomitant]
     Active Substance: VARENICLINE TARTRATE
  18. LISINOPRIL [Concomitant]
     Active Substance: LISINOPRIL
  19. METFORMIN [Concomitant]
     Active Substance: METFORMIN HYDROCHLORIDE
  20. TRADJENTA [Concomitant]
     Active Substance: LINAGLIPTIN
  21. ATORVASTATIN [Concomitant]
     Active Substance: ATORVASTATIN
  22. GABAPENTIN [Concomitant]
     Active Substance: GABAPENTIN
  23. BYDUREON [Concomitant]
     Active Substance: EXENATIDE
  24. ZETIA [Concomitant]
     Active Substance: EZETIMIBE
  25. LANTUS [Concomitant]
     Active Substance: INSULIN GLARGINE
  26. HUMALOG [Concomitant]
     Active Substance: INSULIN LISPRO
  27. ALOGLIPTIN [Concomitant]
     Active Substance: ALOGLIPTIN
  28. SERTRALINE [Concomitant]
     Active Substance: SERTRALINE HYDROCHLORIDE
  29. PRAZOSIN [Concomitant]
     Active Substance: PRAZOSIN
  30. INDOMETHACIN [Concomitant]
     Active Substance: INDOMETHACIN
  31. COLACE [Concomitant]
     Active Substance: DOCUSATE SODIUM
  32. DEMEROL [Concomitant]
     Active Substance: MEPERIDINE HYDROCHLORIDE
  33. AUGMENTIN [Concomitant]
     Active Substance: AMOXICILLIN\CLAVULANATE POTASSIUM
  34. PERCOCET [Concomitant]
     Active Substance: ACETAMINOPHEN\OXYCODONE HYDROCHLORIDE
  35. MORPHINE [Concomitant]
     Active Substance: MORPHINE
  36. DOXYCYCLINE HYCLATE [Concomitant]
     Active Substance: DOXYCYCLINE HYCLATE
  37. BACTRIM [Concomitant]
     Active Substance: SULFAMETHOXAZOLE\TRIMETHOPRIM
  38. ZOLOFT [Concomitant]
     Active Substance: SERTRALINE HYDROCHLORIDE
  39. LASIX [Concomitant]
     Active Substance: FUROSEMIDE
  40. NORCO [Concomitant]
     Active Substance: ACETAMINOPHEN\HYDROCODONE BITARTRATE
  41. LIPITOR [Concomitant]
     Active Substance: ATORVASTATIN CALCIUM
  42. METFORMIN [Concomitant]
     Active Substance: METFORMIN HYDROCHLORIDE
  43. ZESTRIL [Concomitant]
     Active Substance: LISINOPRIL
  44. PRAZOSIN [Concomitant]
     Active Substance: PRAZOSIN
  45. TAZOBACTAM [Concomitant]
     Active Substance: TAZOBACTAM
  46. VANCOMYCIN [Concomitant]
     Active Substance: VANCOMYCIN
  47. SERTRALINE [Concomitant]
     Active Substance: SERTRALINE HYDROCHLORIDE
  48. IBUPROFEN [Concomitant]
     Active Substance: IBUPROFEN
  49. CALCIUM ALGINATE [Concomitant]
     Active Substance: CALCIUM ALGINATE
  50. ONDANSETRON [Concomitant]
     Active Substance: ONDANSETRON

REACTIONS (16)
  - Fournier^s gangrene [Unknown]
  - Pyrexia [Unknown]
  - Scrotal pain [Unknown]
  - Scrotal swelling [Unknown]
  - Erythema [Unknown]
  - Scrotal gangrene [Unknown]
  - Cellulitis of male external genital organ [Unknown]
  - Scrotal abscess [Unknown]
  - Necrotising soft tissue infection [Unknown]
  - Perirectal abscess [Unknown]
  - Groin abscess [Unknown]
  - Abscess limb [Unknown]
  - Cellulitis [Unknown]
  - Scrotal infection [Unknown]
  - Genital abscess [Unknown]
  - Anal abscess [Unknown]

NARRATIVE: CASE EVENT DATE: 20180701
